FAERS Safety Report 5583475-4 (Version None)
Quarter: 2008Q1

REPORT INFORMATION
  Report Type: 
  Country: None (occurrence: None)
  Receive Date: 20080107
  Receipt Date: 20080107
  Transmission Date: 20080703
  Serious: Yes (Other)
  Sender: FDA-Public Use
  Company Number: JP-BOEHRINGER INGELHEIM PHARMACEUTICALS, INC.-2007-BP-26765NB

PATIENT
  Age: 81 Year
  Sex: Female

DRUGS (4)
  1. PRAMIPEXOLE DIHYDROCHLORIDE [Suspect]
     Indication: PARKINSON'S DISEASE
     Route: 048
     Dates: start: 20071130, end: 20071213
  2. LIPITOR [Suspect]
     Indication: HYPERLIPIDAEMIA
     Route: 048
  3. CARBIDOPA AND LEVODOPA [Suspect]
     Indication: PARKINSON'S DISEASE
     Route: 048
  4. ALENDRONATE SODIUM [Suspect]
     Indication: OSTEOPOROSIS
     Route: 048

REACTIONS (1)
  - NEUROLEPTIC MALIGNANT SYNDROME [None]
